FAERS Safety Report 11100472 (Version 2)
Quarter: 2015Q2

REPORT INFORMATION
  Report Type: Spontaneous
  Country: US (occurrence: US)
  Receive Date: 20150508
  Receipt Date: 20150518
  Transmission Date: 20150821
  Serious: Yes (Hospitalization)
  Sender: FDA-Public Use
  Company Number: US-UCBSA-2015013512

PATIENT
  Age: 67 Year
  Sex: Male
  Weight: 82.5 kg

DRUGS (1)
  1. VIMPAT [Suspect]
     Active Substance: LACOSAMIDE
     Indication: SEIZURE
     Dosage: 200 MG, 2X/DAY (BID)
     Route: 048
     Dates: end: 2015

REACTIONS (1)
  - Blood sodium decreased [Recovered/Resolved]

NARRATIVE: CASE EVENT DATE: 201504
